FAERS Safety Report 7188692-8 (Version None)
Quarter: 2010Q4

REPORT INFORMATION
  Report Type: 
  Country: None (occurrence: None)
  Receive Date: 20101222
  Receipt Date: 20100726
  Transmission Date: 20110411
  Serious: No
  Sender: FDA-Public Use
  Company Number: US-AMGEN-KDL423583

PATIENT

DRUGS (7)
  1. ENBREL [Suspect]
     Indication: JUVENILE ARTHRITIS
     Dosage: 25 MG, 2 TIMES/WK
     Route: 058
     Dates: start: 20051115
  2. HYDROXYCHLOROQUINE SULFATE [Concomitant]
     Dosage: 200 MG, UNK
     Dates: start: 20030801
  3. PREDNISONE [Concomitant]
     Dosage: 10 MG, UNK
     Dates: start: 20020801
  4. MELOXICAM [Concomitant]
     Dosage: 15 MG, QD
     Dates: start: 20060201
  5. METHOTREXATE [Concomitant]
     Dosage: UNK UNK, QWK
  6. FOLIC ACID [Concomitant]
     Dosage: 1 MG, QD
     Dates: start: 20021101
  7. LANSOPRAZOLE [Concomitant]
     Dosage: 30 MG, QD
     Dates: start: 20060201

REACTIONS (1)
  - JUVENILE ARTHRITIS [None]
